FAERS Safety Report 6965658-1 (Version None)
Quarter: 2010Q3

REPORT INFORMATION
  Report Type: 
  Country: None (occurrence: None)
  Receive Date: 20100903
  Receipt Date: 20100831
  Transmission Date: 20110219
  Serious: Yes (Death, Life-Threatening, Hospitalization)
  Sender: FDA-Public Use
  Company Number: DE-BAYER-201036633GPV

PATIENT
  Age: 72 Year
  Sex: Male

DRUGS (6)
  1. SORAFENIB [Suspect]
     Indication: RENAL CELL CARCINOMA
     Dates: start: 20100702, end: 20100820
  2. AGRENOX [Concomitant]
  3. NEXIUM [Concomitant]
  4. CALCIMOGANFATE [Concomitant]
  5. PREDNISOLONE [Concomitant]
  6. LORAZEPAM [Concomitant]

REACTIONS (2)
  - ABDOMINAL PAIN UPPER [None]
  - PERITONITIS [None]
